FAERS Safety Report 4607888-X (Version None)
Quarter: 2005Q1

REPORT INFORMATION
  Report Type: 
  Country: None (occurrence: None)
  Receive Date: 20050311
  Receipt Date: 20050304
  Transmission Date: 20050727
  Serious: Yes (Death, Hospitalization)
  Sender: FDA-Public Use
  Company Number: 200510549GDS

PATIENT
  Age: 82 Year
  Sex: Male

DRUGS (9)
  1. ASPIRIN [Suspect]
     Dosage: 100 MG, TOTAL DAILY, ORAL
     Route: 048
     Dates: start: 20050207, end: 20050213
  2. HEPARIN [Suspect]
     Dosage: 1000 IU, TOTAL DAILY, INTRAVENOUS
     Route: 042
     Dates: start: 20050212, end: 20050213
  3. EPOETIN BETA [Concomitant]
  4. PANTOPRAZOLE [Concomitant]
  5. CALCITRIOL [Concomitant]
  6. MOLSIDOMIDE [Concomitant]
  7. CETIRIZINE HCL [Concomitant]
  8. IPRATROPIUM BROMIDE [Concomitant]
  9. ALBUTEROL [Concomitant]

REACTIONS (1)
  - HAEMORRHAGE INTRACRANIAL [None]
